FAERS Safety Report 8541146 (Version 2)
Quarter: 2013Q1

REPORT INFORMATION
  Report Type: Report from Study
  Country: GB (occurrence: GB)
  Receive Date: 20120502
  Receipt Date: 20130205
  Transmission Date: 20140127
  Serious: Yes (Other)
  Sender: FDA-Public Use
  Company Number: GB-ROCHE-1061477

PATIENT
  Age: 63 Year
  Sex: Female

DRUGS (2)
  1. RITUXIMAB [Suspect]
     Indication: PRODUCT USED FOR UNKNOWN INDICATION
     Route: 065
     Dates: start: 20090115
  2. METHOTREXATE [Concomitant]
     Route: 065
     Dates: start: 200203

REACTIONS (2)
  - Malignant melanoma [Recovered/Resolved with Sequelae]
  - Malignant melanoma in situ [Recovered/Resolved]
